FAERS Safety Report 6614173-3 (Version None)
Quarter: 2010Q1

REPORT INFORMATION
  Report Type: 
  Country: None (occurrence: None)
  Receive Date: 20100304
  Receipt Date: 20100222
  Transmission Date: 20100710
  Serious: Yes (Other)
  Sender: FDA-Public Use
  Company Number: GB-PFIZER INC-2010023948

PATIENT

DRUGS (1)
  1. TRANEXAMIC ACID [Suspect]
     Dosage: 100 MG, UNK

REACTIONS (1)
  - SKIN LACERATION [None]
